FAERS Safety Report 7515053-1 (Version None)
Quarter: 2011Q2

REPORT INFORMATION
  Report Type: 
  Country: None (occurrence: None)
  Receive Date: 20110601
  Receipt Date: 20110527
  Transmission Date: 20111010
  Serious: Yes (Death)
  Sender: FDA-Public Use
  Company Number: JP-ASTELLAS-2011US002493

PATIENT
  Age: 62 Year
  Sex: Female

DRUGS (2)
  1. VANCOMYCIN HYDROCHLORIDE [Concomitant]
     Indication: PRODUCT USED FOR UNKNOWN INDICATION
     Dosage: UNK
     Route: 065
  2. AMBISOME [Suspect]
     Indication: SYSTEMIC CANDIDA
     Dosage: 50 MG, BID
     Route: 042

REACTIONS (1)
  - PANCYTOPENIA [None]
